FAERS Safety Report 14488285 (Version 2)
Quarter: 2018Q3

REPORT INFORMATION
  Report Type: Report from Study
  Country: DE (occurrence: DE)
  Receive Date: 20180205
  Receipt Date: 20180926
  Transmission Date: 20181010
  Serious: Yes (Hospitalization, Other)
  Sender: FDA-Public Use
  Company Number: DE-PFIZER INC-2018046555

PATIENT
  Age: 64 Year
  Sex: Female
  Weight: 105 kg

DRUGS (23)
  1. HERCEPTIN [Suspect]
     Active Substance: TRASTUZUMAB
     Dosage: 690 MG, EVERY 3 WEEKS
     Route: 042
     Dates: start: 20160208, end: 20160208
  2. HERCEPTIN [Suspect]
     Active Substance: TRASTUZUMAB
     Dosage: 468 MG, EVERY 3 WEEKS
     Route: 042
     Dates: start: 20161107, end: 20161107
  3. HERCEPTIN [Suspect]
     Active Substance: TRASTUZUMAB
     Dosage: 468 MG, EVERY 3 WEEKS
     Route: 042
     Dates: start: 20160613, end: 20160815
  4. HERCEPTIN [Suspect]
     Active Substance: TRASTUZUMAB
     Dosage: 448 MG, EVERY 3 WEEKS
     Route: 042
     Dates: start: 20160905, end: 20160905
  5. HERCEPTIN [Suspect]
     Active Substance: TRASTUZUMAB
     Dosage: 534 MG, EVERY 3 WEEKS
     Route: 042
     Dates: start: 20160229, end: 20160523
  6. HERCEPTIN [Suspect]
     Active Substance: TRASTUZUMAB
     Dosage: 450 MG, EVERY 3 WEEKS
     Route: 042
     Dates: start: 20160926, end: 20161017
  7. AMITRIPTYLIN [Concomitant]
     Active Substance: AMITRIPTYLINE
     Indication: ARTHROPATHY
     Dosage: 25 MG, 1X/DAY
     Route: 048
     Dates: start: 20000701
  8. BISOPROLOL [Concomitant]
     Active Substance: BISOPROLOL
     Indication: HYPERTENSION
     Dosage: 5 MG, 1X/DAY
     Route: 048
     Dates: start: 20050701
  9. PANTOPRAZOL [Concomitant]
     Active Substance: PANTOPRAZOLE SODIUM
     Indication: ABDOMINAL PAIN UPPER
     Dosage: 40 MG, 1X/DAY
     Route: 048
     Dates: start: 2000
  10. HERCEPTIN [Suspect]
     Active Substance: TRASTUZUMAB
     Dosage: UNK
     Route: 042
     Dates: end: 20170424
  11. METHOTREXATE. [Concomitant]
     Active Substance: METHOTREXATE
     Indication: ARTHROPATHY
     Dosage: 15 MG, WEEKLY
     Route: 065
     Dates: start: 20000701
  12. HERCEPTIN [Suspect]
     Active Substance: TRASTUZUMAB
     Indication: HER-2 POSITIVE BREAST CANCER
     Dosage: 840 MG, SINGLE
     Route: 042
     Dates: start: 20150916, end: 20150916
  13. HERCEPTIN [Suspect]
     Active Substance: TRASTUZUMAB
     Dosage: 630 MG, EVERY 3 WEEKS
     Route: 042
     Dates: start: 20151007, end: 20151007
  14. HERCEPTIN [Suspect]
     Active Substance: TRASTUZUMAB
     Dosage: 450 MG, EVERY 3 WEEKS
     Route: 042
     Dates: start: 20161128, end: 20161219
  15. ALOXI [Concomitant]
     Active Substance: PALONOSETRON HYDROCHLORIDE
     Indication: NAUSEA
     Dosage: 500 UG, UNK
     Route: 048
     Dates: start: 20150916, end: 20151216
  16. SULFASALAZINE DELAYED?RELEASE [Concomitant]
     Active Substance: SULFASALAZINE
     Indication: ARTHROPATHY
     Dosage: 1000 MG, 1X/DAY
     Route: 048
     Dates: start: 20000701
  17. DOCETAXEL. [Suspect]
     Active Substance: DOCETAXEL
     Dosage: 112.5 MG, EVERY 3 WEEKS
     Route: 042
     Dates: start: 20151125, end: 20151216
  18. HERCEPTIN [Suspect]
     Active Substance: TRASTUZUMAB
     Dosage: 600 MG, EVERY 3 WEEKS
     Route: 042
     Dates: start: 20151028, end: 20151216
  19. HERCEPTIN [Suspect]
     Active Substance: TRASTUZUMAB
     Dosage: 660 MG, EVERY 3 WEEKS
     Route: 042
     Dates: start: 20160113, end: 20160113
  20. PERJETA [Suspect]
     Active Substance: PERTUZUMAB
     Dosage: 420 MG, EVERY 3 WEEKS
     Route: 042
     Dates: start: 20151007
  21. DOCETAXEL. [Suspect]
     Active Substance: DOCETAXEL
     Indication: HER-2 POSITIVE BREAST CANCER
     Dosage: 150 MG, EVERY 3 WEEKS
     Route: 042
     Dates: start: 20150916, end: 20151028
  22. PERJETA [Suspect]
     Active Substance: PERTUZUMAB
     Indication: HER-2 POSITIVE BREAST CANCER
     Dosage: 840 MG, SINGLE
     Route: 042
     Dates: start: 20150916, end: 20150916
  23. DEXAMETHASONE. [Concomitant]
     Active Substance: DEXAMETHASONE
     Indication: NAUSEA
     Dosage: 20 MG, UNK
     Route: 042
     Dates: start: 20150916, end: 20151216

REACTIONS (12)
  - Nausea [Recovered/Resolved]
  - Weight decreased [Recovered/Resolved]
  - Nail disorder [Not Recovered/Not Resolved]
  - Alopecia [Recovered/Resolved]
  - Intestinal haemorrhage [Recovered/Resolved]
  - Peripheral sensory neuropathy [Not Recovered/Not Resolved]
  - Pyrexia [Recovered/Resolved]
  - Actinic keratosis [Recovered/Resolved]
  - Constipation [Recovered/Resolved]
  - Decreased appetite [Recovered/Resolved]
  - Ascites [Recovered/Resolved]
  - Dyspnoea [Recovering/Resolving]

NARRATIVE: CASE EVENT DATE: 20150916
